FAERS Safety Report 8436972-8 (Version None)
Quarter: 2012Q2

REPORT INFORMATION
  Report Type: 
  Country: None (occurrence: None)
  Receive Date: 20120614
  Receipt Date: 20120202
  Transmission Date: 20120825
  Serious: No
  Sender: FDA-Public Use
  Company Number: US-AMGEN-USASP2012004453

PATIENT
  Sex: Male

DRUGS (5)
  1. LIPITOR [Concomitant]
     Dosage: UNK
  2. ZEMPLAR [Concomitant]
     Dosage: UNK
  3. ARANESP [Suspect]
     Indication: ANAEMIA OF CHRONIC DISEASE
     Dosage: 60 MUG, Q3WK
     Dates: start: 20111101
  4. FLU [Concomitant]
     Dosage: UNK
  5. LISINOPRIL [Concomitant]
     Dosage: UNK

REACTIONS (1)
  - INHIBITING ANTIBODIES [None]
